FAERS Safety Report 6570954-6 (Version None)
Quarter: 2010Q1

REPORT INFORMATION
  Report Type: 
  Country: None (occurrence: None)
  Receive Date: 20100204
  Receipt Date: 20100125
  Transmission Date: 20100710
  Serious: Yes (Hospitalization, Disabling)
  Sender: FDA-Public Use
  Company Number: PHHY2010DE04346

PATIENT
  Sex: Female

DRUGS (1)
  1. TASIGNA [Suspect]
     Dosage: 400 MG DAILY

REACTIONS (3)
  - BREAST CANCER [None]
  - NEOPLASM MALIGNANT [None]
  - OESOPHAGITIS [None]
